FAERS Safety Report 12613459 (Version 1)
Quarter: 2016Q3

REPORT INFORMATION
  Report Type: Spontaneous
  Country: US (occurrence: None)
  Receive Date: 20160801
  Receipt Date: 20160801
  Transmission Date: 20161109
  Serious: No
  Sender: FDA-Public Use
  Company Number: None

PATIENT
  Age: 84 Year
  Sex: Male
  Weight: 89.36 kg

DRUGS (2)
  1. ROCEPHIN [Suspect]
     Active Substance: CEFTRIAXONE SODIUM
     Indication: NASAL CONGESTION
     Dosage: 1GM ONE TIME IM DOSE IM RIGHT VENTROGLUETAL
     Route: 030
     Dates: start: 20160705
  2. ROCEPHIN [Suspect]
     Active Substance: CEFTRIAXONE SODIUM
     Indication: COUGH
     Dosage: 1GM ONE TIME IM DOSE IM RIGHT VENTROGLUETAL
     Route: 030
     Dates: start: 20160705

REACTIONS (7)
  - Dyspnoea [None]
  - Loss of consciousness [None]
  - Electrocardiogram abnormal [None]
  - Eye movement disorder [None]
  - Dizziness [None]
  - Paraesthesia oral [None]
  - Pulse absent [None]

NARRATIVE: CASE EVENT DATE: 20160705
